FAERS Safety Report 8219793-0 (Version None)
Quarter: 2012Q1

REPORT INFORMATION
  Report Type: 
  Country: None (occurrence: None)
  Receive Date: 20120319
  Receipt Date: 20120305
  Transmission Date: 20120608
  Serious: Yes (Other)
  Sender: FDA-Public Use
  Company Number: JP-ELI_LILLY_AND_COMPANY-JP201203002029

PATIENT
  Age: 65 Year

DRUGS (5)
  1. CARBOPLATIN [Concomitant]
     Indication: LUNG ADENOCARCINOMA
  2. ALIMTA [Suspect]
     Indication: LUNG ADENOCARCINOMA
     Route: 042
  3. VITAMIN B-12 [Concomitant]
  4. FOLIC ACID [Concomitant]
  5. BEVACIZUMAB [Concomitant]
     Indication: LUNG ADENOCARCINOMA

REACTIONS (1)
  - INTESTINAL PERFORATION [None]
